FAERS Safety Report 4859998-X (Version None)
Quarter: 2005Q4

REPORT INFORMATION
  Report Type: 
  Country: None (occurrence: None)
  Receive Date: 20051219
  Receipt Date: 20051214
  Transmission Date: 20060501
  Serious: Yes (Hospitalization)
  Sender: FDA-Public Use
  Company Number: GB-MERCK-0512GBR00081

PATIENT
  Age: 44 Year
  Sex: Female

DRUGS (5)
  1. COGENTIN [Suspect]
     Route: 065
  2. VALPROATE SODIUM [Suspect]
     Route: 065
  3. TERAZOSIN HYDROCHLORIDE [Suspect]
     Route: 048
     Dates: start: 20050818
  4. CLOZAPINE [Suspect]
     Route: 065
  5. IBUPROFEN [Suspect]
     Route: 065

REACTIONS (3)
  - DIARRHOEA [None]
  - MYOCLONUS [None]
  - PNEUMONIA [None]
